FAERS Safety Report 9676941 (Version 1)
Quarter: 2013Q4

REPORT INFORMATION
  Report Type: Spontaneous
  Country: US (occurrence: US)
  Receive Date: 20131108
  Receipt Date: 20131108
  Transmission Date: 20140711
  Serious: No
  Sender: FDA-Public Use
  Company Number: US-SA-2013SA106683

PATIENT
  Sex: 0

DRUGS (1)
  1. ALLEGRA [Suspect]
     Dosage: TAKEN FROM-OVER 5 YEARS
     Route: 065

REACTIONS (1)
  - Odynophagia [Unknown]
